FAERS Safety Report 5201361-6 (Version None)
Quarter: 2007Q1

REPORT INFORMATION
  Report Type: 
  Country: None (occurrence: None)
  Receive Date: 20070104
  Receipt Date: 20061222
  Transmission Date: 20070707
  Serious: Yes (Death)
  Sender: FDA-Public Use
  Company Number: T200601494

PATIENT
  Sex: Female

DRUGS (4)
  1. OPTIRAY 350 [Suspect]
     Indication: CATHETERISATION CARDIAC
     Dosage: 60 ML, SINGLE, INTRAVENOUS
     Route: 042
     Dates: start: 20061215, end: 20061215
  2. OPTIRAY 350 [Suspect]
     Indication: STENT PLACEMENT
     Dosage: 60 ML, SINGLE, INTRAVENOUS
     Route: 042
     Dates: start: 20061215, end: 20061215
  3. OPTIRAY 350 [Suspect]
  4. OPTIRAY 350 [Suspect]

REACTIONS (1)
  - PROCEDURAL HYPOTENSION [None]
